FAERS Safety Report 23466650 (Version 1)
Quarter: 2024Q1

REPORT INFORMATION
  Report Type: Spontaneous
  Country: US (occurrence: None)
  Receive Date: 20240201
  Receipt Date: 20240201
  Transmission Date: 20240410
  Serious: No
  Sender: FDA-Public Use
  Company Number: US-INFO-20230286

PATIENT
  Sex: Female
  Weight: 97.6 kg

DRUGS (12)
  1. METRONIDAZOLE [Suspect]
     Active Substance: METRONIDAZOLE
     Indication: Skin infection
     Dosage: IN TOTAL
     Route: 040
     Dates: start: 20230305, end: 20230305
  2. CEFEPIME [Concomitant]
     Active Substance: CEFEPIME HYDROCHLORIDE
     Indication: Sepsis
     Dosage: IN TOTAL
     Route: 040
     Dates: start: 20230305, end: 20230305
  3. CEFTRIAXONE [Concomitant]
     Active Substance: CEFTRIAXONE\CEFTRIAXONE SODIUM
     Indication: Sepsis
     Route: 040
     Dates: start: 20230305, end: 20230306
  4. ENOXAPARIN [Concomitant]
     Active Substance: ENOXAPARIN
     Indication: Prophylaxis
     Route: 058
     Dates: start: 20230305, end: 20230306
  5. PANTOPRAZOLE [Concomitant]
     Active Substance: PANTOPRAZOLE
     Indication: Dyspepsia
     Route: 048
     Dates: start: 20230305, end: 20230306
  6. VANCOMYCIN [Concomitant]
     Active Substance: VANCOMYCIN
     Indication: Skin infection
     Dosage: IN TOTAL
     Route: 040
     Dates: start: 20230305, end: 20230305
  7. DIPHENHYDRAMINE [Concomitant]
     Active Substance: DIPHENHYDRAMINE
     Indication: Infusion related reaction
     Dosage: IN TOTAL
     Route: 040
     Dates: start: 20230305, end: 20230305
  8. LACTATED RINGERS SOLUTION [Concomitant]
     Active Substance: CALCIUM CHLORIDE\POTASSIUM CHLORIDE\SODIUM CHLORIDE\SODIUM LACTATE
     Indication: Fluid replacement
     Dosage: ()
     Dates: start: 20230305, end: 20230305
  9. METHYLPREDNISOLONE [Concomitant]
     Active Substance: METHYLPREDNISOLONE
     Indication: Sepsis
     Dosage: IN TOTAL
     Route: 040
     Dates: start: 20230305, end: 20230305
  10. METOCLOPRAMIDE [Concomitant]
     Active Substance: METOCLOPRAMIDE
     Indication: Vomiting
     Dosage: IN TOTAL
     Route: 040
     Dates: start: 20230305, end: 20230305
  11. HYDRALAZINE [Concomitant]
     Active Substance: HYDRALAZINE HYDROCHLORIDE
     Indication: Hypertension
     Dosage: IN TOTAL
     Route: 040
     Dates: start: 20230305, end: 20230305
  12. ONDANSETRON [Concomitant]
     Active Substance: ONDANSETRON
     Indication: Nausea
     Dosage: IN TOTAL
     Route: 040
     Dates: start: 20230305, end: 20230305

REACTIONS (2)
  - Pruritus [Unknown]
  - Rash [Unknown]
